FAERS Safety Report 7952371-7 (Version None)
Quarter: 2011Q4

REPORT INFORMATION
  Report Type: 
  Country: None (occurrence: None)
  Receive Date: 20111201
  Receipt Date: 20111121
  Transmission Date: 20120403
  Serious: Yes (Death, Hospitalization, Other)
  Sender: FDA-Public Use
  Company Number: US-ELI_LILLY_AND_COMPANY-US201012000613

PATIENT
  Sex: Female

DRUGS (31)
  1. FORTEO [Suspect]
     Dosage: 20 UG, QD
     Route: 065
  2. WARFARIN SODIUM [Concomitant]
     Dosage: 7.5 MG, QD
     Route: 065
  3. SYNTHROID [Concomitant]
     Dosage: 0.15 MG, UNKNOWN
     Route: 065
  4. FORTEO [Suspect]
     Dosage: 20 UG, QD
  5. HYDROCODONE [Concomitant]
     Dosage: 500 MG, BID
     Route: 065
  6. CALCIUM [Concomitant]
     Dosage: 1500 MG, QD
     Route: 065
  7. KLOR-CON [Concomitant]
     Dosage: 20 MG, UNKNOWN
     Route: 065
  8. METOPROLOL TARTRATE [Concomitant]
     Dosage: 25 MG, BID
     Route: 065
  9. TRAZODONE HCL [Concomitant]
     Dosage: 50 MG, OTHER
     Route: 065
  10. LIPITOR [Concomitant]
     Dosage: 40 MG, UNKNOWN
     Route: 065
  11. FORTEO [Suspect]
     Dosage: 20 UG, QD
  12. LISINOPRIL [Concomitant]
     Dosage: 40 MG, BID
     Route: 065
  13. TRUSOPT [Concomitant]
     Dosage: UNK, UNKNOWN
     Route: 065
  14. PRESERVISION LUTEIN EYE VITA.+MIN.SUP.SOFTG. [Concomitant]
     Dosage: UNK, UNKNOWN
     Route: 065
  15. CELEBREX [Concomitant]
     Dosage: 200 MG, UNKNOWN
     Route: 065
  16. FORTEO [Suspect]
     Indication: OSTEOPOROSIS
     Dosage: 20 UG, QD
     Route: 065
     Dates: start: 20100929
  17. DIAZEPAM [Concomitant]
     Dosage: 5 MG, OTHER
     Route: 065
  18. MIRAPEX [Concomitant]
     Dosage: 0.5 MG, BID
     Route: 065
  19. EFFEXOR XR [Concomitant]
     Dosage: UNK, UNKNOWN
     Route: 065
  20. ADVAIR DISKUS 100/50 [Concomitant]
     Dosage: UNK, BID
     Route: 065
  21. NEURONTIN [Concomitant]
     Dosage: 300 MG, BID
     Route: 065
  22. MUCINEX [Concomitant]
     Dosage: UNK, UNKNOWN
     Route: 065
  23. FORTEO [Suspect]
     Dosage: 20 UG, QD
     Route: 065
  24. LASIX [Concomitant]
     Dosage: 80 MG, UNKNOWN
     Route: 065
  25. FIORICET [Concomitant]
     Dosage: UNK, PRN
     Route: 065
  26. NEXIUM [Concomitant]
     Dosage: 40 MG, UNKNOWN
     Route: 065
  27. FLONASE [Concomitant]
     Dosage: UNK, UNKNOWN
     Route: 065
  28. MULTI-VITAMIN [Concomitant]
     Dosage: UNK, UNKNOWN
     Route: 065
  29. TOPAMAX [Concomitant]
     Dosage: 100 MG, QD
     Route: 065
  30. SINGULAIR [Concomitant]
     Dosage: 10 MG, OTHER
     Route: 065
  31. IRON [Concomitant]
     Dosage: UNK, UNKNOWN
     Route: 065

REACTIONS (8)
  - CARDIAC OPERATION [None]
  - GLAUCOMA [None]
  - DEATH [None]
  - FOOT FRACTURE [None]
  - FALL [None]
  - SOMNOLENCE [None]
  - MACULAR DEGENERATION [None]
  - VISUAL IMPAIRMENT [None]
